FAERS Safety Report 7873359-0 (Version None)
Quarter: 2011Q4

REPORT INFORMATION
  Report Type: 
  Country: None (occurrence: None)
  Receive Date: 20111030
  Receipt Date: 20110503
  Transmission Date: 20120403
  Serious: No
  Sender: FDA-Public Use
  Company Number: US-AMGEN-USASP2011023018

PATIENT
  Age: 56 Year
  Sex: Male

DRUGS (1)
  1. ENBREL [Suspect]
     Indication: PSORIATIC ARTHROPATHY
     Dosage: 50 MG, QWK
     Dates: start: 20061101

REACTIONS (5)
  - INJECTION SITE PAIN [None]
  - GAIT DISTURBANCE [None]
  - ARTHRALGIA [None]
  - SINUSITIS [None]
  - OEDEMA PERIPHERAL [None]
